FAERS Safety Report 24529527 (Version 1)
Quarter: 2024Q4

REPORT INFORMATION
  Report Type: Report from Study
  Country: CA (occurrence: CA)
  Receive Date: 20241021
  Receipt Date: 20241021
  Transmission Date: 20250114
  Serious: Yes (Other)
  Sender: TAKEDA
  Company Number: CA-TAKEDA-2024TUS103845

PATIENT
  Age: 52 Year
  Sex: Male

DRUGS (7)
  1. VEDOLIZUMAB [Suspect]
     Active Substance: VEDOLIZUMAB
     Indication: Colitis ulcerative
     Dosage: 300 MILLIGRAM
     Route: 042
     Dates: start: 20240927
  2. PREDNISONE [Concomitant]
     Active Substance: PREDNISONE
     Dosage: UNK
     Dates: start: 20240809
  3. MESALAMINE [Concomitant]
     Active Substance: MESALAMINE
     Dosage: UNK
     Dates: start: 20240809
  4. GLICLAZIDE [Concomitant]
     Active Substance: GLICLAZIDE
     Dosage: 30 MILLIGRAM
  5. PERINDOPRIL [Concomitant]
     Active Substance: PERINDOPRIL
     Dosage: 8 MILLIGRAM
  6. MIRTAZAPINE [Concomitant]
     Active Substance: MIRTAZAPINE
     Dosage: 30 MILLIGRAM
  7. TRAZODONE [Concomitant]
     Active Substance: TRAZODONE HYDROCHLORIDE
     Dosage: 50 MILLIGRAM

REACTIONS (1)
  - Pneumonia [Not Recovered/Not Resolved]

NARRATIVE: CASE EVENT DATE: 20241010
